FAERS Safety Report 6725522-X (Version None)
Quarter: 2010Q2

REPORT INFORMATION
  Report Type: 
  Country: None (occurrence: None)
  Receive Date: 20100514
  Receipt Date: 20100506
  Transmission Date: 20101027
  Serious: Yes (Life-Threatening, Hospitalization)
  Sender: FDA-Public Use
  Company Number: FR-BRACCO-000384

PATIENT
  Sex: Female

DRUGS (2)
  1. MULTIHANCE [Suspect]
     Indication: NUCLEAR MAGNETIC RESONANCE IMAGING
     Route: 042
     Dates: start: 20100325, end: 20100325
  2. MULTIHANCE [Suspect]
     Indication: MEMORY IMPAIRMENT
     Route: 042
     Dates: start: 20100325, end: 20100325

REACTIONS (1)
  - ANAPHYLACTIC SHOCK [None]
